FAERS Safety Report 9357918 (Version 1)
Quarter: 2013Q2

REPORT INFORMATION
  Report Type: Spontaneous
  Country: US (occurrence: None)
  Receive Date: 20130617
  Receipt Date: 20130617
  Transmission Date: 20140414
  Serious: Yes (Hospitalization)
  Sender: FDA-Public Use
  Company Number: 148645

PATIENT
  Age: 51 Year
  Sex: Female

DRUGS (2)
  1. LEUCOVORIN CALCIUM FOR INJ. 50MG - BEDFORD LABS, INC. [Suspect]
     Indication: SMALL INTESTINE CARCINOMA
     Dosage: IV INFUSION
     Route: 042
  2. IRINOTECAN [Suspect]
     Indication: SMALL INTESTINE CARCINOMA
     Dosage: IV INFUSION
     Route: 042

REACTIONS (9)
  - Multi-organ failure [None]
  - Nausea [None]
  - Vomiting [None]
  - Depression [None]
  - Dilatation ventricular [None]
  - Pulmonary oedema [None]
  - Disease progression [None]
  - Small intestine carcinoma [None]
  - Intracardiac thrombus [None]
